FAERS Safety Report 7594187-X (Version None)
Quarter: 2011Q3

REPORT INFORMATION
  Report Type: 
  Country: None (occurrence: None)
  Receive Date: 20110706
  Receipt Date: 20110630
  Transmission Date: 20111222
  Serious: Yes (Disabling, Other)
  Sender: FDA-Public Use
  Company Number: US-ABBOTT-11P-163-0835582-00

PATIENT
  Sex: Female

DRUGS (1)
  1. DEPAKOTE [Suspect]
     Indication: MATERNAL EXPOSURE DURING PREGNANCY
     Route: 064

REACTIONS (15)
  - UNEVALUABLE EVENT [None]
  - DEFORMITY [None]
  - PREGNANCY [None]
  - MULTIPLE INJURIES [None]
  - MENTAL IMPAIRMENT [None]
  - PAIN [None]
  - EMOTIONAL DISTRESS [None]
  - FEELING ABNORMAL [None]
  - MENTAL DISORDER [None]
  - ECONOMIC PROBLEM [None]
  - LOSS OF EMPLOYMENT [None]
  - ANHEDONIA [None]
  - DISSOCIATION [None]
  - PHYSICAL DISABILITY [None]
  - MATERNAL EXPOSURE DURING PREGNANCY [None]
